FAERS Safety Report 9295740 (Version 1)
Quarter: 2013Q2

REPORT INFORMATION
  Report Type: Spontaneous
  Country: ES (occurrence: ES)
  Receive Date: 20130517
  Receipt Date: 20130517
  Transmission Date: 20140414
  Serious: Yes (Hospitalization)
  Sender: FDA-Public Use
  Company Number: ES-ROXANE LABORATORIES, INC.-2013-RO-00771RO

PATIENT
  Age: 83 Year
  Sex: Male

DRUGS (1)
  1. CLOPIDOGREL [Suspect]
     Indication: MYOCARDIAL INFARCTION

REACTIONS (2)
  - Rash pruritic [Recovered/Resolved]
  - Rash papular [Recovered/Resolved]
